FAERS Safety Report 24397917 (Version 6)
Quarter: 2025Q1

REPORT INFORMATION
  Report Type: Spontaneous
  Country: US (occurrence: US)
  Receive Date: 20241004
  Receipt Date: 20250317
  Transmission Date: 20250409
  Serious: Yes (Other)
  Sender: PFIZER
  Company Number: US-PFIZER INC-202400249987

PATIENT
  Age: 49 Year
  Sex: Male

DRUGS (3)
  1. ADCETRIS [Suspect]
     Active Substance: BRENTUXIMAB VEDOTIN
     Indication: Hodgkin^s disease nodular sclerosis
     Dosage: 82.68 MG, EVERY 3 WEEKS
     Route: 042
     Dates: start: 202303
  2. MESNEX [Concomitant]
     Active Substance: MESNA
     Indication: Hodgkin^s disease nodular sclerosis
  3. VEPESID [Concomitant]
     Active Substance: ETOPOSIDE
     Indication: Hodgkin^s disease nodular sclerosis

REACTIONS (4)
  - Hodgkin^s disease nodular sclerosis [Unknown]
  - Malignant neoplasm progression [Unknown]
  - Off label use [Unknown]
  - Product use issue [Unknown]
